FAERS Safety Report 5645671-7 (Version None)
Quarter: 2008Q1

REPORT INFORMATION
  Report Type: 
  Country: None (occurrence: None)
  Receive Date: 20080229
  Receipt Date: 20080205
  Transmission Date: 20080703
  Serious: No
  Sender: FDA-Public Use
  Company Number: US-BOEHRINGER INGELHEIM GMBH, GERMANY-2008-BP-00769BP

PATIENT
  Sex: Female

DRUGS (15)
  1. SPIRIVA [Suspect]
     Indication: CHRONIC OBSTRUCTIVE PULMONARY DISEASE
     Route: 055
     Dates: start: 20070401
  2. SPIRIVA [Suspect]
     Indication: DYSPNOEA
  3. TYLENOL (CAPLET) [Concomitant]
  4. CALCIUM/ CALTRATE [Concomitant]
     Dosage: 600 MG/ 400 MG 1 TO 2 TABLET  A DAY
  5. POTASSIUM/ KLOR-CON [Concomitant]
     Dosage: 20 - ONE DAILY
  6. ASPIRIN [Concomitant]
  7. IRON [Concomitant]
  8. BUMEX [Concomitant]
     Indication: BLADDER DISORDER
  9. PROCRIT [Concomitant]
  10. NEXIUM [Concomitant]
  11. CHROMAGEN FORTE [Concomitant]
  12. MAGNESIUM [Concomitant]
  13. EYES PRESERVESION SOFT GEL [Concomitant]
  14. RESTASIS [Concomitant]
  15. OPTIVE EYEDROPS [Concomitant]

REACTIONS (4)
  - DRUG INEFFECTIVE [None]
  - KIDNEY INFECTION [None]
  - PNEUMONIA [None]
  - PYREXIA [None]
